FAERS Safety Report 8118728-9 (Version None)
Quarter: 2011Q4

REPORT INFORMATION
  Report Type: 
  Country: None (occurrence: None)
  Receive Date: 20111227
  Receipt Date: 20111018
  Transmission Date: 20120403
  Serious: No
  Sender: FDA-Public Use
  Company Number: PHEH2011US07188

PATIENT
  Age: 51 Year
  Sex: Male

DRUGS (3)
  1. BUPROPION HCL [Concomitant]
  2. CITALOPRAM HYDROBROMIDE [Concomitant]
  3. GILENYA [Suspect]
     Dosage: 0.5 MG, QD, ORAL
     Route: 048
     Dates: start: 20110803

REACTIONS (2)
  - TINNITUS [None]
  - HEADACHE [None]
